FAERS Safety Report 4554079-7 (Version None)
Quarter: 2005Q1

REPORT INFORMATION
  Report Type: 
  Country: None (occurrence: None)
  Receive Date: 20050118
  Receipt Date: 20050104
  Transmission Date: 20050727
  Serious: Yes (Hospitalization)
  Sender: FDA-Public Use
  Company Number: US-MERCK-0501USA00260

PATIENT
  Sex: Male

DRUGS (5)
  1. ZOCOR [Suspect]
     Indication: BLOOD CHOLESTEROL INCREASED
     Route: 048
     Dates: start: 20040101, end: 20050104
  2. PRINIVIL [Concomitant]
     Route: 065
  3. METFORMIN [Concomitant]
     Route: 065
  4. METOPROLOL [Concomitant]
     Route: 065
  5. TERAZOSIN HYDROCHLORIDE [Concomitant]
     Route: 065

REACTIONS (14)
  - AMNESIA [None]
  - ANOREXIA [None]
  - ARTHRALGIA [None]
  - CONSTIPATION [None]
  - DYSPHAGIA [None]
  - DYSPNOEA [None]
  - GASTRIC DISORDER [None]
  - INSOMNIA [None]
  - MENTAL DISORDER [None]
  - MUSCLE ATROPHY [None]
  - MYALGIA [None]
  - NAUSEA [None]
  - NODULE [None]
  - WEIGHT DECREASED [None]
